FAERS Safety Report 8563570-8 (Version None)
Quarter: 2012Q3

REPORT INFORMATION
  Report Type: 
  Country: None (occurrence: None)
  Receive Date: 20120803
  Receipt Date: 20120723
  Transmission Date: 20120928
  Serious: Yes (Death, Hospitalization, Other)
  Sender: FDA-Public Use
  Company Number: TR-AMGEN-TURSP2012025179

PATIENT
  Age: 55 Year
  Sex: Female

DRUGS (1)
  1. ENBREL [Suspect]
     Indication: RHEUMATOID ARTHRITIS
     Dosage: 50 MG, WEEKLY
     Route: 058
     Dates: start: 20101024, end: 20120317

REACTIONS (5)
  - MYOCARDIAL INFARCTION [None]
  - CORNEAL TRANSPLANT [None]
  - PNEUMONIA [None]
  - FOOT DEFORMITY [None]
  - POST PROCEDURAL INFECTION [None]
